FAERS Safety Report 6311551-7 (Version None)
Quarter: 2009Q3

REPORT INFORMATION
  Report Type: 
  Country: None (occurrence: None)
  Receive Date: 20090817
  Receipt Date: 20090811
  Transmission Date: 20100115
  Serious: Yes (Other)
  Sender: FDA-Public Use
  Company Number: US-PFIZER INC-2009238207

PATIENT
  Sex: Male
  Weight: 70.306 kg

DRUGS (6)
  1. SUNITINIB MALATE [Suspect]
     Indication: ADENOCARCINOMA
     Dosage: 50 MG, UNK
     Route: 048
     Dates: start: 20060101
  2. OMEPRAZOLE [Concomitant]
     Dosage: 20 MG, 2X/DAY
  3. GABAPENTIN [Concomitant]
     Dosage: 600 MG, 2X/DAY
  4. ENALAPRIL MALEATE [Concomitant]
     Dosage: 10 MG, 2X/DAY
  5. DOXAZOSIN [Concomitant]
     Dosage: 8 MG, 2X/DAY
  6. DUTASTERIDE [Concomitant]
     Dosage: 5 MG, 2X/DAY

REACTIONS (2)
  - DYSPNOEA [None]
  - HAEMORRHAGE [None]
